FAERS Safety Report 10504541 (Version 1)
Quarter: 2014Q4

REPORT INFORMATION
  Report Type: Spontaneous
  Country: IT (occurrence: IT)
  Receive Date: 20141008
  Receipt Date: 20141008
  Transmission Date: 20150528
  Serious: Yes (Hospitalization)
  Sender: FDA-Public Use
  Company Number: IT-TEVA-513678ISR

PATIENT
  Age: 67 Year
  Sex: Male

DRUGS (11)
  1. BARACLUDE 0.5 MG [Concomitant]
  2. DELTACORTENE 25 MG [Concomitant]
     Active Substance: PREDNISONE
  3. ROCEFIN [Concomitant]
     Active Substance: CEFTRIAXONE SODIUM
     Dosage: FORM OF ADMIN: POWDER AND SOLVENT FOR SOLUTION FOR INJECTION
  4. ENDOXAN BAXTER [Suspect]
     Active Substance: CYCLOPHOSPHAMIDE
     Indication: NON-HODGKIN^S LYMPHOMA
     Dosage: 1 DOSAGE FORMS DAILY; FORM OF ADMIN: POWDER FOR SOLUTION FOR INJECTION
     Route: 042
     Dates: start: 20131213, end: 20140513
  5. MABTHERA [Suspect]
     Active Substance: RITUXIMAB
     Indication: NON-HODGKIN^S LYMPHOMA
     Dosage: 6 DOSAGE FORMS DAILY;
     Route: 042
     Dates: start: 20131213, end: 20140513
  6. TAVOR 1 MG [Concomitant]
     Active Substance: LORAZEPAM
  7. MYOCET [Suspect]
     Active Substance: DOXORUBICIN
     Indication: NON-HODGKIN^S LYMPHOMA
     Route: 042
     Dates: start: 20131213, end: 20140513
  8. VINCRISTINA SOLFATO [Suspect]
     Active Substance: VINCRISTINE SULFATE
     Indication: NON-HODGKIN^S LYMPHOMA
     Dosage: 2 DOSAGE FORMS DAILY;
     Route: 042
     Dates: start: 20131213, end: 20140513
  9. RAMIRPIL [Concomitant]
  10. LEVOFLOXACINA [Concomitant]
     Active Substance: LEVOFLOXACIN
  11. PANTORC 40 MG [Concomitant]

REACTIONS (1)
  - Congestive cardiomyopathy [Recovering/Resolving]

NARRATIVE: CASE EVENT DATE: 20140930
